FAERS Safety Report 6894834-1 (Version None)
Quarter: 2010Q3

REPORT INFORMATION
  Report Type: 
  Country: None (occurrence: None)
  Receive Date: 20100730
  Receipt Date: 20100730
  Transmission Date: 20110219
  Serious: No
  Sender: FDA-Public Use
  Company Number: None

PATIENT
  Age: 61 Year
  Sex: Female
  Weight: 65.7716 kg

DRUGS (1)
  1. ETODOLAC [Suspect]
     Indication: TOOTHACHE
     Dosage: 1 TAB (3) DAILY
     Dates: start: 20100430

REACTIONS (1)
  - HEADACHE [None]
